FAERS Safety Report 9144400 (Version 3)
Quarter: 2013Q2

REPORT INFORMATION
  Report Type: Spontaneous
  Country: DK (occurrence: DK)
  Receive Date: 20130306
  Receipt Date: 20130429
  Transmission Date: 20140414
  Serious: Yes (Hospitalization, Other)
  Sender: FDA-Public Use
  Company Number: DK-ELI_LILLY_AND_COMPANY-DK201302010177

PATIENT
  Age: 73 Year
  Sex: Male
  Weight: 83 kg

DRUGS (4)
  1. EFIENT [Suspect]
     Indication: STENT PLACEMENT
     Dosage: 60 MG, SINGLE
     Route: 048
     Dates: start: 20120413, end: 20120413
  2. EFIENT [Suspect]
     Dosage: 10 MG, QD
     Route: 048
     Dates: start: 20120414, end: 20120622
  3. ASPIRIN [Concomitant]
     Dosage: 300-500 MG LOADING DOSE
  4. ASPIRIN [Concomitant]
     Dosage: 100 MG, QD

REACTIONS (2)
  - Gastric ulcer haemorrhage [Recovering/Resolving]
  - Haemoglobin decreased [Recovering/Resolving]
